FAERS Safety Report 4538878-3 (Version None)
Quarter: 2004Q4

REPORT INFORMATION
  Report Type: 
  Country: None (occurrence: None)
  Receive Date: 20041222
  Receipt Date: 20041209
  Transmission Date: 20050328
  Serious: Yes (Hospitalization, Other)
  Sender: FDA-Public Use
  Company Number: USA041285750

PATIENT
  Age: 74 Year
  Sex: Female
  Weight: 61 kg

DRUGS (2)
  1. FORTEO [Suspect]
     Indication: BONE PAIN
     Dosage: 20 UG/1 DAY
     Dates: start: 20030501
  2. PREDNISONE [Concomitant]

REACTIONS (16)
  - BALANCE DISORDER [None]
  - CARDIOMYOPATHY [None]
  - FALL [None]
  - HEART RATE INCREASED [None]
  - LIP DISORDER [None]
  - MALAISE [None]
  - MEDICATION ERROR [None]
  - MEMORY IMPAIRMENT [None]
  - PERONEAL NERVE PALSY [None]
  - PHARMACEUTICAL PRODUCT COMPLAINT [None]
  - SKIN LACERATION [None]
  - SPINAL FRACTURE [None]
  - THINKING ABNORMAL [None]
  - THROMBOSIS [None]
  - TREMOR [None]
  - WALKING AID USER [None]
